FAERS Safety Report 14707056 (Version 2)
Quarter: 2018Q2

REPORT INFORMATION
  Report Type: Report from Study
  Country: None (occurrence: US)
  Receive Date: 20180403
  Receipt Date: 20180522
  Transmission Date: 20180711
  Serious: Yes (Hospitalization)
  Sender: FDA-Public Use
  Company Number: US-ABBVIE-18K-163-2288496-00

PATIENT
  Age: 57 Year
  Sex: Female

DRUGS (2)
  1. HUMIRA [Suspect]
     Active Substance: ADALIMUMAB
     Indication: COLITIS ULCERATIVE
     Route: 058
     Dates: start: 20171117
  2. HUMIRA [Suspect]
     Active Substance: ADALIMUMAB
     Indication: CROHN^S DISEASE
     Route: 058

REACTIONS (6)
  - Postoperative wound infection [Recovered/Resolved]
  - Incision site pain [Recovered/Resolved]
  - Incision site erythema [Recovered/Resolved]
  - Impaired healing [Recovered/Resolved]
  - Large intestinal stenosis [Not Recovered/Not Resolved]
  - Investigation abnormal [Unknown]

NARRATIVE: CASE EVENT DATE: 20180213
